FAERS Safety Report 17426982 (Version 1)
Quarter: 2020Q1

REPORT INFORMATION
  Report Type: Spontaneous
  Country: NL (occurrence: NL)
  Receive Date: 20200218
  Receipt Date: 20200218
  Transmission Date: 20200409
  Serious: Yes (Other)
  Sender: FDA-Public Use
  Company Number: NL-GLAXOSMITHKLINE-NL2020020460

PATIENT
  Age: 22 Year
  Sex: Female
  Weight: 108 kg

DRUGS (1)
  1. EXCEDRIN [Suspect]
     Active Substance: ACETAMINOPHEN\ASPIRIN\CAFFEINE
     Indication: HEADACHE
     Dosage: TABLET, 250/250/65 MG (MILLIGRAM), DID NOT TAKE ANY MEDICATION FOR SEVERE HEADACHE, I TOOK 2
     Route: 065
     Dates: start: 2020

REACTIONS (3)
  - Rhinorrhoea [Not Recovered/Not Resolved]
  - Palatal oedema [Not Recovered/Not Resolved]
  - Fatigue [Not Recovered/Not Resolved]

NARRATIVE: CASE EVENT DATE: 20200126
